FAERS Safety Report 4673831-0 (Version None)
Quarter: 2005Q2

REPORT INFORMATION
  Report Type: 
  Country: None (occurrence: None)
  Receive Date: 20050523
  Receipt Date: 20050321
  Transmission Date: 20051028
  Serious: Yes (Hospitalization, Other)
  Sender: FDA-Public Use
  Company Number: MED000061

PATIENT
  Age: 26 Year
  Sex: Female
  Weight: 56.6996 kg

DRUGS (4)
  1. LACTATED RINGER'S [Suspect]
     Indication: ABDOMINAL PAIN
     Dosage: 75 ML; QH; INTRAVENOUS
     Route: 042
     Dates: start: 20050321
  2. LACTATED RINGER'S [Suspect]
     Indication: ABDOMINAL PAIN
     Dosage: 75 ML; QH; INTRAVENOUS
     Route: 042
     Dates: start: 20050321
  3. LACTATED RINGER'S [Suspect]
     Indication: ABDOMINAL PAIN
     Dosage: 75 ML; QH; INTRAVENOUS
     Route: 042
     Dates: start: 20050321
  4. PHENERGAN [Concomitant]

REACTIONS (2)
  - PRURITUS [None]
  - URTICARIA [None]
